FAERS Safety Report 4434382-1 (Version None)
Quarter: 2004Q3

REPORT INFORMATION
  Report Type: 
  Country: None (occurrence: None)
  Receive Date: 20040726
  Receipt Date: 20040422
  Transmission Date: 20050211
  Serious: No
  Sender: FDA-Public Use
  Company Number: USA040464189

PATIENT
  Age: 60 Year
  Sex: Female
  Weight: 84 kg

DRUGS (3)
  1. FORTEO [Suspect]
     Indication: FRACTURE
     Dates: start: 20040215
  2. FORTEO [Suspect]
     Indication: OSTEOPOROSIS
     Dates: start: 20040215
  3. FORTEO [Suspect]
     Indication: STRESS FRACTURE
     Dates: start: 20040215

REACTIONS (3)
  - DIZZINESS [None]
  - MUSCLE CRAMP [None]
  - PAIN IN EXTREMITY [None]
